FAERS Safety Report 4615619-2 (Version None)
Quarter: 2005Q1

REPORT INFORMATION
  Report Type: 
  Country: None (occurrence: None)
  Receive Date: 20050317
  Receipt Date: 20050301
  Transmission Date: 20050727
  Serious: Yes (Hospitalization)
  Sender: FDA-Public Use
  Company Number: 2004BI001634

PATIENT
  Age: 33 Year
  Sex: Female
  Weight: 99.7913 kg

DRUGS (2)
  1. AVONEX [Suspect]
     Indication: MULTIPLE SCLEROSIS
     Dosage: 30 UG; QW; IM
     Route: 030
     Dates: start: 20040805, end: 20040101
  2. LITHIUM [Concomitant]

REACTIONS (2)
  - CHOLELITHIASIS [None]
  - DIABETES MELLITUS NON-INSULIN-DEPENDENT [None]
